FAERS Safety Report 25564469 (Version 2)
Quarter: 2025Q3

REPORT INFORMATION
  Report Type: Spontaneous
  Country: EU (occurrence: EU)
  Receive Date: 20250716
  Receipt Date: 20250802
  Transmission Date: 20251020
  Serious: Yes (Life-Threatening, Hospitalization, Other)
  Sender: AUROBINDO
  Company Number: EU-MLMSERVICE-20250626-PI553535-00271-1

PATIENT
  Age: 68 Year
  Sex: Male

DRUGS (12)
  1. PREDNISONE [Suspect]
     Active Substance: PREDNISONE
     Indication: Immunosuppressant drug therapy
     Dosage: 10 MILLIGRAM, ONCE A DAY
     Route: 065
     Dates: start: 202112
  2. PREDNISONE [Suspect]
     Active Substance: PREDNISONE
     Dosage: 10 MILLIGRAM, ONCE A DAY
     Route: 065
     Dates: start: 202204
  3. TACROLIMUS [Suspect]
     Active Substance: TACROLIMUS
     Indication: Immunosuppressant drug therapy
     Dosage: 10 MILLIGRAM, ONCE A DAY
     Route: 065
     Dates: start: 202112
  4. TACROLIMUS [Suspect]
     Active Substance: TACROLIMUS
     Indication: Liver transplant
     Dosage: 2 MILLIGRAM, TWO TIMES A DAY
     Route: 065
     Dates: start: 2022
  5. TACROLIMUS [Suspect]
     Active Substance: TACROLIMUS
     Dosage: 2 MILLIGRAM, ONCE A DAY
     Route: 065
     Dates: start: 2022
  6. TACROLIMUS [Suspect]
     Active Substance: TACROLIMUS
     Route: 065
  7. TACROLIMUS [Suspect]
     Active Substance: TACROLIMUS
     Dosage: 2 MILLIGRAM, BID
     Route: 065
  8. VORICONAZOLE [Suspect]
     Active Substance: VORICONAZOLE
     Indication: Phaeohyphomycosis
     Route: 048
     Dates: start: 2022, end: 2022
  9. VORICONAZOLE [Suspect]
     Active Substance: VORICONAZOLE
     Route: 042
     Dates: start: 202205
  10. ITRACONAZOLE [Concomitant]
     Active Substance: ITRACONAZOLE
     Indication: Product used for unknown indication
     Route: 065
     Dates: start: 202204
  11. TERBINAFINE [Concomitant]
     Active Substance: TERBINAFINE
     Indication: Phaeohyphomycosis
     Dosage: 500 MILLIGRAM, ONCE A DAY
     Route: 065
  12. POSACONAZOLE [Concomitant]
     Active Substance: POSACONAZOLE
     Indication: Phaeohyphomycosis
     Route: 048
     Dates: start: 202209

REACTIONS (5)
  - Phaeohyphomycosis [Recovered/Resolved]
  - Drug interaction [Unknown]
  - Drug ineffective [Unknown]
  - Therapeutic product effect decreased [Unknown]
  - Off label use [Not Recovered/Not Resolved]

NARRATIVE: CASE EVENT DATE: 20220101
